FAERS Safety Report 4521124-4 (Version None)
Quarter: 2004Q4

REPORT INFORMATION
  Report Type: 
  Country: None (occurrence: None)
  Receive Date: 20041208
  Receipt Date: 20041130
  Transmission Date: 20050328
  Serious: Yes (Other)
  Sender: FDA-Public Use
  Company Number: AU-ROCHE-387722

PATIENT
  Age: 48 Year
  Sex: Female

DRUGS (6)
  1. CEFTRIAXONE SODIUM [Suspect]
     Route: 065
     Dates: start: 20040719, end: 20040720
  2. SPIRONOLACTONE [Concomitant]
     Indication: DRUG USE FOR UNKNOWN INDICATION
  3. BOSENTAN [Concomitant]
     Indication: DRUG USE FOR UNKNOWN INDICATION
  4. FRUSEMIDE [Concomitant]
     Indication: DRUG USE FOR UNKNOWN INDICATION
  5. SLOW-K [Concomitant]
     Indication: DRUG USE FOR UNKNOWN INDICATION
  6. WARFARIN SODIUM [Concomitant]
     Indication: DRUG USE FOR UNKNOWN INDICATION

REACTIONS (5)
  - ANAPHYLACTIC REACTION [None]
  - CARDIAC ARREST [None]
  - COMA [None]
  - FEELING ABNORMAL [None]
  - VOMITING [None]
